FAERS Safety Report 23518626 (Version 1)
Quarter: 2024Q1

REPORT INFORMATION
  Report Type: Spontaneous
  Country: US (occurrence: None)
  Receive Date: 20240213
  Receipt Date: 20240213
  Transmission Date: 20240409
  Serious: Yes (Other)
  Sender: FDA-Public Use
  Company Number: None

PATIENT
  Age: 72 Year
  Sex: Male
  Weight: 113.4 kg

DRUGS (1)
  1. SYFOVRE [Suspect]
     Active Substance: PEGCETACOPLAN
     Indication: Age-related macular degeneration
     Route: 047

REACTIONS (4)
  - Vision blurred [None]
  - Diplopia [None]
  - Eye irritation [None]
  - Photosensitivity reaction [None]

NARRATIVE: CASE EVENT DATE: 20231121
